FAERS Safety Report 17259788 (Version 10)
Quarter: 2021Q1

REPORT INFORMATION
  Report Type: Report from Study
  Country: None (occurrence: US)
  Receive Date: 20200110
  Receipt Date: 20210129
  Transmission Date: 20210419
  Serious: Yes (Other)
  Sender: FDA-Public Use
  Company Number: US-ABBVIE-19K-163-3206969-00

PATIENT
  Age: 70 Year
  Sex: Male

DRUGS (9)
  1. VENCLEXTA [Suspect]
     Active Substance: VENETOCLAX
     Route: 048
  2. GAZYVA [Concomitant]
     Active Substance: OBINUTUZUMAB
     Indication: PRODUCT USED FOR UNKNOWN INDICATION
  3. VENCLEXTA [Suspect]
     Active Substance: VENETOCLAX
     Dosage: DOSE DECREASED
     Route: 048
  4. VENCLEXTA [Suspect]
     Active Substance: VENETOCLAX
     Indication: CHRONIC LYMPHOCYTIC LEUKAEMIA
     Route: 048
     Dates: start: 20191015
  5. VENCLEXTA [Suspect]
     Active Substance: VENETOCLAX
     Route: 048
  6. VENCLEXTA [Suspect]
     Active Substance: VENETOCLAX
     Indication: B-CELL LYMPHOMA
     Route: 048
  7. VENCLEXTA [Suspect]
     Active Substance: VENETOCLAX
     Indication: CHRONIC LYMPHOCYTIC LEUKAEMIA
     Route: 048
  8. EPCLUSA [Concomitant]
     Active Substance: SOFOSBUVIR\VELPATASVIR
     Indication: PRODUCT USED FOR UNKNOWN INDICATION
  9. ALLOPURINOL. [Concomitant]
     Active Substance: ALLOPURINOL
     Indication: PRODUCT USED FOR UNKNOWN INDICATION

REACTIONS (39)
  - Fluid retention [Unknown]
  - Hepatic enzyme increased [Unknown]
  - Dizziness [Unknown]
  - Hypoaesthesia [Unknown]
  - Sinus disorder [Unknown]
  - Hepatitis C [Unknown]
  - Dyspnoea [Unknown]
  - Muscular weakness [Unknown]
  - Nasal discharge discolouration [Unknown]
  - Oedema [Recovered/Resolved]
  - Fatigue [Unknown]
  - Dyspepsia [Unknown]
  - Platelet count decreased [Recovered/Resolved]
  - Insomnia [Unknown]
  - Musculoskeletal stiffness [Unknown]
  - Coordination abnormal [Not Recovered/Not Resolved]
  - Pain [Recovering/Resolving]
  - Oedema [Unknown]
  - Hallucination [Unknown]
  - Asthenia [Unknown]
  - Contusion [Unknown]
  - Fibrosis [Unknown]
  - Lymphadenopathy [Unknown]
  - Bone contusion [Recovering/Resolving]
  - Sinusitis [Unknown]
  - Fall [Recovering/Resolving]
  - Dyspepsia [Unknown]
  - Pulmonary contusion [Unknown]
  - Sleep deficit [Unknown]
  - Abdominal pain upper [Unknown]
  - Memory impairment [Unknown]
  - Oropharyngeal pain [Unknown]
  - Erythema [Unknown]
  - Platelet count decreased [Unknown]
  - Viral load decreased [Unknown]
  - Chromaturia [Recovering/Resolving]
  - Urinary retention [Recovering/Resolving]
  - Pain [Not Recovered/Not Resolved]
  - Pain in extremity [Unknown]

NARRATIVE: CASE EVENT DATE: 2019
